FAERS Safety Report 7059352-9 (Version None)
Quarter: 2010Q4

REPORT INFORMATION
  Report Type: 
  Country: None (occurrence: None)
  Receive Date: 20101025
  Receipt Date: 20101013
  Transmission Date: 20110411
  Serious: No
  Sender: FDA-Public Use
  Company Number: 2008BI028632

PATIENT
  Sex: Female

DRUGS (2)
  1. TYSABRI [Suspect]
     Indication: MULTIPLE SCLEROSIS
     Route: 042
     Dates: start: 20080710, end: 20100610
  2. BENADRYL [Concomitant]
     Indication: PREMEDICATION

REACTIONS (3)
  - RASH [None]
  - TOOTH ABSCESS [None]
  - TOOTH INFECTION [None]
